FAERS Safety Report 13621339 (Version 1)
Quarter: 2017Q2

REPORT INFORMATION
  Report Type: Report from Study
  Country: US (occurrence: US)
  Receive Date: 20170607
  Receipt Date: 20170607
  Transmission Date: 20170830
  Serious: No
  Sender: FDA-Public Use
  Company Number: GXBR2017US001721

PATIENT
  Age: 15 Year
  Sex: Male
  Weight: 28.5 kg

DRUGS (3)
  1. OMNITROPE [Suspect]
     Active Substance: SOMATROPIN
     Indication: BODY HEIGHT BELOW NORMAL
     Dosage: 0.8 MG, QD
     Route: 058
     Dates: start: 201509
  2. OMNITROPE [Suspect]
     Active Substance: SOMATROPIN
     Indication: SMALL FOR DATES BABY
  3. CLARITIN [Concomitant]
     Active Substance: LORATADINE
     Dosage: UNK DF, UNK

REACTIONS (2)
  - Injection site bruising [Unknown]
  - Increased appetite [Unknown]

NARRATIVE: CASE EVENT DATE: 201704
